FAERS Safety Report 6647895-9 (Version None)
Quarter: 2010Q1

REPORT INFORMATION
  Report Type: 
  Country: None (occurrence: None)
  Receive Date: 20100318
  Receipt Date: 20100304
  Transmission Date: 20100710
  Serious: Yes (Death)
  Sender: FDA-Public Use
  Company Number: 008760

PATIENT

DRUGS (4)
  1. KEPPRA [Suspect]
     Indication: EPILEPSY
     Dosage: (TRANSPLACENTAL)
     Route: 064
  2. CLONAZEPAM [Suspect]
     Indication: EPILEPSY
     Dosage: (TRANSPLACENTAL)
     Route: 064
  3. CARBAMAZEPINE [Suspect]
     Indication: EPILEPSY
     Dosage: (TRANSPLACENTAL)
     Route: 064
  4. PHENYTOIN (PHENYTOINE) [Suspect]
     Indication: EPILEPSY
     Dosage: (TRANSPLACENTAL)
     Route: 064

REACTIONS (3)
  - HEART DISEASE CONGENITAL [None]
  - INTRA-UTERINE DEATH [None]
  - MATERNAL DRUGS AFFECTING FOETUS [None]
